FAERS Safety Report 20747004 (Version 1)
Quarter: 2022Q2

REPORT INFORMATION
  Report Type: Spontaneous
  Country: US (occurrence: US)
  Receive Date: 20220425
  Receipt Date: 20220425
  Transmission Date: 20220721
  Serious: No
  Sender: FDA-Public Use
  Company Number: US-PFIZER INC-202101080810

PATIENT
  Age: 54 Year
  Sex: Female
  Weight: 62.6 kg

DRUGS (4)
  1. METHYLPREDNISOLONE [Suspect]
     Active Substance: METHYLPREDNISOLONE
     Indication: Rash
     Dosage: 4 MG, 3X/DAY
     Dates: start: 20210716
  2. METHYLPREDNISOLONE [Suspect]
     Active Substance: METHYLPREDNISOLONE
     Indication: Pruritus
  3. FAMOTIDINE [Suspect]
     Active Substance: FAMOTIDINE
     Indication: Pruritus
     Dosage: 20 MG, 2X/DAY
     Dates: start: 20210716
  4. FAMOTIDINE [Suspect]
     Active Substance: FAMOTIDINE
     Indication: Rash

REACTIONS (1)
  - Drug ineffective [Unknown]
